FAERS Safety Report 18562371 (Version 1)
Quarter: 2020Q4

REPORT INFORMATION
  Report Type: Spontaneous
  Country: AU (occurrence: AU)
  Receive Date: 20201130
  Receipt Date: 20201130
  Transmission Date: 20210114
  Serious: Yes (Death)
  Sender: FDA-Public Use
  Company Number: AU-BAXTER-2020BAX024091

PATIENT
  Sex: Female

DRUGS (18)
  1. VITALIPID N INFANT [Suspect]
     Active Substance: .ALPHA.-TOCOPHEROL, DL-\ERGOCALCIFEROL\PHYTONADIONE\VITAMIN A PALMITATE
     Indication: PARENTERAL NUTRITION
     Route: 065
  2. SODIUM ACETATE. [Suspect]
     Active Substance: SODIUM ACETATE
     Indication: PARENTERAL NUTRITION
     Dosage: 2MMOL/ML
     Route: 065
  3. SODIUM IODIDE [Suspect]
     Active Substance: SODIUM IODIDE
     Indication: PARENTERAL NUTRITION
     Dosage: 51 MICROGRAM/ML
     Route: 065
  4. SMOFLIPID [Suspect]
     Active Substance: FISH OIL\MEDIUM-CHAIN TRIGLYCERIDES\OLIVE OIL\SOYBEAN OIL
     Indication: PARENTERAL NUTRITION
     Route: 065
  5. TPN GLUCOSE [Suspect]
     Active Substance: DEXTROSE
     Indication: PARENTERAL NUTRITION
     Route: 065
  6. ZINC. [Suspect]
     Active Substance: ZINC
     Indication: PARENTERAL NUTRITION
     Dosage: 2.5 MG/ML
     Route: 065
  7. COPPER [Suspect]
     Active Substance: COPPER
     Indication: PARENTERAL NUTRITION
     Dosage: 100 MICROGRAM/ML
     Route: 065
  8. CHROMIUM [Suspect]
     Active Substance: CHROMIC CHLORIDE\CHROMIUM
     Indication: PARENTERAL NUTRITION
     Dosage: 3.2 MICROGRAM/ML
     Route: 065
  9. SYNTHAMIN [Suspect]
     Active Substance: AMINO ACIDS
     Indication: PARENTERAL NUTRITION
     Route: 065
  10. POTASSIUM DI-H PHOSPHATE [Suspect]
     Active Substance: POTASSIUM PHOSPHATE, MONOBASIC
     Indication: PARENTERAL NUTRITION
     Dosage: 1MMOL/ML
     Route: 065
  11. SODIUM CHLORIDE. [Suspect]
     Active Substance: SODIUM CHLORIDE
     Indication: PARENTERAL NUTRITION
     Dosage: 4MMOL/ML
     Route: 065
  12. POTASSIUM CHLORIDE. [Suspect]
     Active Substance: POTASSIUM CHLORIDE
     Indication: PARENTERAL NUTRITION
     Dosage: 3MMOL/ML
     Route: 065
  13. MAGNESIUM SULFATE. [Suspect]
     Active Substance: MAGNESIUM SULFATE
     Indication: PARENTERAL NUTRITION
     Dosage: 2 MMOL/ML
     Route: 065
  14. SELENIUM [Suspect]
     Active Substance: SELENIUM
     Indication: PARENTERAL NUTRITION
     Dosage: 30MICROGRAM/ML
     Route: 065
  15. SOLUVIT N [Suspect]
     Active Substance: VITAMINS
     Indication: PARENTERAL NUTRITION
     Route: 065
  16. CALCIUM GLUCONATE. [Suspect]
     Active Substance: CALCIUM GLUCONATE
     Indication: PARENTERAL NUTRITION
     Dosage: 0.22 MMOL/ML
     Route: 065
  17. STERILE WATER [Suspect]
     Active Substance: WATER
     Indication: PARENTERAL NUTRITION
     Route: 065
  18. WATER FOR INJECTION [Suspect]
     Active Substance: WATER
     Indication: PARENTERAL NUTRITION
     Route: 065

REACTIONS (1)
  - Death [Fatal]

NARRATIVE: CASE EVENT DATE: 20201119
